FAERS Safety Report 10376712 (Version 2)
Quarter: 2014Q3

REPORT INFORMATION
  Report Type: Spontaneous
  Country: US (occurrence: None)
  Receive Date: 20140807
  Receipt Date: 20140813
  Transmission Date: 20150326
  Serious: Yes (Other)
  Sender: FDA-Public Use
  Company Number: AEGR000538

PATIENT
  Age: 55 Year
  Sex: Female
  Weight: 81.6 kg

DRUGS (10)
  1. PROTONIX [Concomitant]
     Active Substance: PANTOPRAZOLE SODIUM
  2. DILAUDID [Concomitant]
     Active Substance: HYDROMORPHONE HYDROCHLORIDE
  3. NITROSTAT (GLYCERYL TRINITRATE) [Concomitant]
  4. VITAMIN D (COLECALCIFEROL) [Concomitant]
  5. ZETIA [Concomitant]
     Active Substance: EZETIMIBE
  6. RANEXA (RANOLAZINE) TABLET [Concomitant]
  7. BRILINTA [Concomitant]
     Active Substance: TICAGRELOR
  8. JUXTAPID [Suspect]
     Active Substance: LOMITAPIDE MESYLATE
     Indication: TYPE IIA HYPERLIPIDAEMIA
     Route: 048
     Dates: start: 20140521, end: 20140620
  9. LASIX [Concomitant]
     Active Substance: FUROSEMIDE
  10. NEURONTIN [Concomitant]
     Active Substance: GABAPENTIN

REACTIONS (6)
  - Catheterisation cardiac [None]
  - Nausea [None]
  - Weight decreased [None]
  - Diarrhoea [None]
  - Gastritis [None]
  - Vomiting [None]

NARRATIVE: CASE EVENT DATE: 201406
